FAERS Safety Report 21558876 (Version 6)
Quarter: 2025Q2

REPORT INFORMATION
  Report Type: Report from Study
  Country: CA (occurrence: CA)
  Receive Date: 20221107
  Receipt Date: 20250402
  Transmission Date: 20250717
  Serious: Yes (Other)
  Sender: TAKEDA
  Company Number: CA-TAKEDA-2022TUS081552

PATIENT
  Sex: Female

DRUGS (9)
  1. VEDOLIZUMAB [Suspect]
     Active Substance: VEDOLIZUMAB
     Indication: Crohn^s disease
  2. VEDOLIZUMAB [Suspect]
     Active Substance: VEDOLIZUMAB
  3. VEDOLIZUMAB [Suspect]
     Active Substance: VEDOLIZUMAB
  4. VEDOLIZUMAB [Suspect]
     Active Substance: VEDOLIZUMAB
  5. VEDOLIZUMAB [Suspect]
     Active Substance: VEDOLIZUMAB
  6. PANTOPRAZOLE SODIUM [Suspect]
     Active Substance: PANTOPRAZOLE SODIUM
     Indication: Product used for unknown indication
  7. PAXIL [Concomitant]
     Active Substance: PAROXETINE HYDROCHLORIDE
     Dosage: 45 MILLIGRAM, QD
  8. VITAMIN D [Concomitant]
     Active Substance: VITAMIN D NOS
  9. CONTRAVE [Concomitant]
     Active Substance: BUPROPION HYDROCHLORIDE\NALTREXONE HYDROCHLORIDE

REACTIONS (15)
  - Haematochezia [Unknown]
  - Dry eye [Not Recovered/Not Resolved]
  - Urticaria [Recovered/Resolved]
  - Fatigue [Recovering/Resolving]
  - Gastrooesophageal reflux disease [Unknown]
  - Gingival pain [Unknown]
  - Anxiety [Unknown]
  - Anal haemorrhage [Unknown]
  - Eye pain [Unknown]
  - Arthritis [Unknown]
  - Stomatitis [Unknown]
  - Abdominal pain [Unknown]
  - Dyspepsia [Recovering/Resolving]
  - Headache [Unknown]
  - Nausea [Recovered/Resolved]
